FAERS Safety Report 7274534 (Version 2)
Quarter: 2012Q4

REPORT INFORMATION
  Report Type: 
  Country: US (occurrence: US)
  Receive Date: 20100209
  Receipt Date: 20120905
  Transmission Date: 20130627
  Serious: Yes (Death)
  Sender: FDA-Public Use
  Company Number: US-MYLANLABS-2010S1001507

PATIENT
  Age: 17 Year
  Sex: Male
  Weight: 90.72 kg

DRUGS (17)
  1. FENTANYL TRANSDERMAL SYSTEM [Suspect]
     Indication: BACK PAIN
     Dosage: q48hr
     Route: 062
     Dates: end: 200801
  2. FENTANYL TRANSDERMAL SYSTEM [Suspect]
     Indication: BACK PAIN
     Dosage: q48hr
     Route: 062
     Dates: end: 200801
  3. HYDROCODONE + ACETAMINOPHEN [Suspect]
  4. DIAZEPAM [Suspect]
  5. CYMBALTA [Concomitant]
  6. LYRICA [Concomitant]
  7. SEROQUEL [Concomitant]
  8. CELEBREX [Concomitant]
  9. NASONEX [Concomitant]
  10. TORADOL [Concomitant]
  11. CLONAZEPAM [Concomitant]
  12. FLEXERIL [Concomitant]
  13. INDOMETHACIN [Concomitant]
  14. IBUPROFEN [Concomitant]
  15. LIDODERM PATCH [Concomitant]
  16. LIDOCAIN /00033402/ [Concomitant]
  17. ASTELIN [Concomitant]

REACTIONS (3)
  - Toxicity to various agents [Fatal]
  - Resuscitation [None]
  - Unresponsive to stimuli [None]
